FAERS Safety Report 8134819-0 (Version None)
Quarter: 2012Q1

REPORT INFORMATION
  Report Type: 
  Country: None (occurrence: None)
  Receive Date: 20120214
  Receipt Date: 20120210
  Transmission Date: 20120608
  Serious: Yes (Other)
  Sender: FDA-Public Use
  Company Number: AU-PFIZER INC-2012038607

PATIENT
  Sex: Female

DRUGS (1)
  1. VARENICLINE TARTRATE [Suspect]
     Dosage: UNK

REACTIONS (5)
  - DEPRESSION SUICIDAL [None]
  - NAUSEA [None]
  - CONSTIPATION [None]
  - DYSPNOEA [None]
  - SLEEP DISORDER [None]
